FAERS Safety Report 10199614 (Version 1)
Quarter: 2014Q2

REPORT INFORMATION
  Report Type: Spontaneous
  Country: IT (occurrence: IT)
  Receive Date: 20140527
  Receipt Date: 20140527
  Transmission Date: 20141212
  Serious: Yes (Other)
  Sender: FDA-Public Use
  Company Number: IT-BAXTER-2014BAX025434

PATIENT
  Age: 21 Year
  Sex: Female
  Weight: 46 kg

DRUGS (2)
  1. SODIO CLORURO BAXTER S.P.A. 0,9% [Suspect]
     Indication: HYPONATRAEMIA
     Route: 042
  2. K-LACTATE [Suspect]
     Indication: HYPONATRAEMIA
     Route: 065

REACTIONS (6)
  - Osmotic demyelination syndrome [Recovered/Resolved with Sequelae]
  - Exposure during pregnancy [Recovered/Resolved]
  - Maternal exposure during pregnancy [None]
  - Rapid correction of hyponatraemia [None]
  - Caesarean section [None]
  - Premature delivery [None]
